FAERS Safety Report 7942610-0 (Version None)
Quarter: 2011Q4

REPORT INFORMATION
  Report Type: 
  Country: None (occurrence: None)
  Receive Date: 20111128
  Receipt Date: 20111122
  Transmission Date: 20120403
  Serious: Yes (Hospitalization)
  Sender: FDA-Public Use
  Company Number: US-BRISTOL-MYERS SQUIBB COMPANY-16243834

PATIENT
  Age: 70 Year
  Sex: Female
  Weight: 75 kg

DRUGS (3)
  1. TAXOL [Suspect]
     Indication: NON-SMALL CELL LUNG CANCER
     Dosage: LAST ADMINISTERED DATE:01NOV2011.
     Dates: start: 20110920
  2. CARBOPLATIN [Suspect]
     Indication: NON-SMALL CELL LUNG CANCER
     Dosage: LAST ADMINISTERED DATE:01NOV2011
     Dates: start: 20110920
  3. ERBITUX [Suspect]
     Indication: NON-SMALL CELL LUNG CANCER
     Dosage: LAST ADMINISTERED DOSE:15NOV2011.
     Dates: start: 20110920

REACTIONS (9)
  - RADIATION INJURY [None]
  - DYSPHAGIA [None]
  - FATIGUE [None]
  - BRONCHITIS [None]
  - DEVICE RELATED INFECTION [None]
  - DEHYDRATION [None]
  - DYSPNOEA [None]
  - NAUSEA [None]
  - OESOPHAGITIS [None]
